FAERS Safety Report 7596425-6 (Version None)
Quarter: 2011Q3

REPORT INFORMATION
  Report Type: 
  Country: None (occurrence: None)
  Receive Date: 20110707
  Receipt Date: 20110704
  Transmission Date: 20111222
  Serious: Yes (Hospitalization, Other)
  Sender: FDA-Public Use
  Company Number: CA-ABBOTT-11P-028-0733951-00

PATIENT
  Sex: Male
  Weight: 95.34 kg

DRUGS (4)
  1. LASIX [Concomitant]
     Indication: DIURETIC THERAPY
     Route: 048
     Dates: start: 20090101
  2. HUMIRA [Suspect]
     Indication: PSORIASIS
     Route: 058
     Dates: start: 20100222
  3. SESTREL [Concomitant]
     Indication: CARDIAC DISORDER
     Dosage: 1.5 DAY
     Dates: start: 19920101
  4. COUMADIN [Concomitant]
     Indication: ANTICOAGULANT THERAPY
     Route: 048
     Dates: start: 19920101

REACTIONS (4)
  - OSTEOARTHRITIS [None]
  - BONE DISORDER [None]
  - PROCEDURAL PAIN [None]
  - BACK PAIN [None]
